FAERS Safety Report 17995219 (Version 1)
Quarter: 2020Q3

REPORT INFORMATION
  Report Type: Spontaneous
  Country: US (occurrence: US)
  Receive Date: 20200708
  Receipt Date: 20200708
  Transmission Date: 20201103
  Serious: No
  Sender: FDA-Public Use
  Company Number: US-TEVA-2020-US-1797766

PATIENT
  Sex: Male

DRUGS (1)
  1. WARFARIN SODIUM TEVA [Suspect]
     Active Substance: WARFARIN SODIUM
     Route: 065

REACTIONS (1)
  - Blood count abnormal [Unknown]
